FAERS Safety Report 9849984 (Version 1)
Quarter: 2013Q4

REPORT INFORMATION
  Report Type: Spontaneous
  Country: US (occurrence: None)
  Receive Date: 20131226
  Receipt Date: 20131226
  Transmission Date: 20140711
  Serious: Yes (Disabling, Other)
  Sender: FDA-Public Use
  Company Number: PHEH2012US014314

PATIENT
  Age: 54 Year
  Sex: Female
  Weight: 78 kg

DRUGS (16)
  1. AFINITOR (RAD) UNKNOWN [Suspect]
     Indication: BREAST CANCER METASTATIC
     Route: 048
     Dates: start: 20120614, end: 20120620
  2. AROMASIN (EXEMESTANE) [Concomitant]
  3. IMITREX (SUMATRIPTAN SUCCINATE) [Concomitant]
  4. K-TAB (POTASSIUM CHLORIDE) [Concomitant]
  5. VITAMIN E (TOCOPHEROL) [Concomitant]
  6. VASOTEC (ENALAPRIL MALEATE) [Concomitant]
  7. MULTI-VITAMINS (CALCIUM PANTOTHENATE, FOLIC ACID, VITAMINS NOS) [Concomitant]
  8. LASIX (FUROSEMIDE) [Concomitant]
  9. TOPAMAX (TOPIRAMATE) [Concomitant]
  10. EFFEXOR (VENLAFAXINE HYDROCHLORIDE) [Concomitant]
  11. AVASTIN (BEVACIZUMAB) [Concomitant]
  12. CALCIUM (CALCIUM) [Concomitant]
  13. ZOMETA (ZOLEDRONIC ACID) [Concomitant]
  14. BONIVA (IBANDRONATE SODIUM) [Concomitant]
  15. ARIMIDEX (ANASTROZOLE) [Concomitant]
  16. ZANTAC (RANITIDINE HYDROCHLORIDE) [Concomitant]

REACTIONS (20)
  - Stomatitis [None]
  - Gastrointestinal inflammation [None]
  - Vaginal inflammation [None]
  - Anal inflammation [None]
  - Vision blurred [None]
  - Tinnitus [None]
  - Hot flush [None]
  - Joint stiffness [None]
  - Temperature intolerance [None]
  - Neuropathy peripheral [None]
  - Bone pain [None]
  - Recall phenomenon [None]
  - Arthralgia [None]
  - Red blood cell count decreased [None]
  - Blood magnesium decreased [None]
  - Blood glucose decreased [None]
  - Blood lactate dehydrogenase increased [None]
  - Drug intolerance [None]
  - Haematocrit decreased [None]
  - Haemoglobin decreased [None]
